FAERS Safety Report 18037526 (Version 2)
Quarter: 2020Q3

REPORT INFORMATION
  Report Type: Spontaneous
  Country: US (occurrence: US)
  Receive Date: 20200717
  Receipt Date: 20200720
  Transmission Date: 20201103
  Serious: Yes (Other)
  Sender: FDA-Public Use
  Company Number: US-PFIZER INC-2020273940

PATIENT
  Age: 42 Year
  Sex: Male

DRUGS (1)
  1. VFEND [Suspect]
     Active Substance: VORICONAZOLE
     Dosage: 200 MG, 2X/DAY (200MG TAB PO (PER ORAL) Q 12H INDEFINITELY)
     Route: 048

REACTIONS (2)
  - SARS-CoV-2 test positive [Unknown]
  - Brain abscess [Unknown]
